FAERS Safety Report 5027435-0 (Version None)
Quarter: 2006Q2

REPORT INFORMATION
  Report Type: 
  Country: None (occurrence: None)
  Receive Date: 20060501
  Receipt Date: 20060117
  Transmission Date: 20061013
  Serious: No
  Sender: FDA-Public Use
  Company Number: 200610433BWH

PATIENT
  Age: 82 Year
  Sex: Female
  Weight: 56.6996 kg

DRUGS (4)
  1. NEXAVAR [Suspect]
     Indication: ANGIOSARCOMA
     Dosage: 400 MG, BID, ORAL
     Route: 048
     Dates: start: 20060110
  2. FOSAMAX [Concomitant]
  3. DIURETIC [Concomitant]
  4. GLAUCOMA [Concomitant]

REACTIONS (2)
  - BONE PAIN [None]
  - HYPERTENSION [None]
